FAERS Safety Report 4299190-3 (Version None)
Quarter: 2004Q1

REPORT INFORMATION
  Report Type: 
  Country: None (occurrence: None)
  Receive Date: 20040217
  Receipt Date: 20040217
  Transmission Date: 20041129
  Serious: Yes (Other)
  Sender: FDA-Public Use
  Company Number: None

PATIENT
  Age: 22 Year
  Sex: Male
  Weight: 79.3795 kg

DRUGS (2)
  1. FLUOXETINE [Suspect]
     Indication: ANXIETY
     Dosage: 2 PILLS ONCE A DAY ORAL
     Route: 048
     Dates: start: 20020101, end: 20020214
  2. FLUOXETINE [Suspect]
     Indication: OBSESSIVE-COMPULSIVE DISORDER
     Dosage: 2 PILLS ONCE A DAY ORAL
     Route: 048
     Dates: start: 20020101, end: 20020214

REACTIONS (4)
  - DISTURBANCE IN ATTENTION [None]
  - DIZZINESS [None]
  - HEART RATE INCREASED [None]
  - TREMOR [None]
